FAERS Safety Report 14767091 (Version 1)
Quarter: 2018Q2

REPORT INFORMATION
  Report Type: Spontaneous
  Country: US (occurrence: US)
  Receive Date: 20180417
  Receipt Date: 20180417
  Transmission Date: 20180711
  Serious: No
  Sender: FDA-Public Use
  Company Number: US-JNJFOC-20180339962

PATIENT
  Age: 64 Year
  Sex: Female
  Weight: 71.67 kg

DRUGS (2)
  1. TYLENOL 8 HR ARTHRITIS PAIN [Suspect]
     Active Substance: ACETAMINOPHEN
     Route: 048
  2. TYLENOL 8 HR ARTHRITIS PAIN [Suspect]
     Active Substance: ACETAMINOPHEN
     Indication: ARTHRITIS
     Dosage: TOOK THE PRODUCT ON SUNDAY AND MONDAY NIGHT
     Route: 048

REACTIONS (3)
  - Incorrect dose administered [Unknown]
  - Headache [Unknown]
  - Inappropriate schedule of drug administration [Unknown]
